FAERS Safety Report 8591956-4 (Version None)
Quarter: 2012Q3

REPORT INFORMATION
  Report Type: 
  Country: None (occurrence: None)
  Receive Date: 20120803
  Receipt Date: 20120803
  Transmission Date: 20120928
  Serious: Yes (Other)
  Sender: FDA-Public Use
  Company Number: None

PATIENT
  Age: 77 Year
  Sex: Female

DRUGS (1)
  1. FORTEO [Suspect]
     Indication: OSTEOPOROSIS
     Dosage: 20MCG DAILY SUBQ
     Route: 058
     Dates: start: 20120223, end: 20120727

REACTIONS (3)
  - HEADACHE [None]
  - BONE PAIN [None]
  - HYPERTENSION [None]
